FAERS Safety Report 16151123 (Version 3)
Quarter: 2024Q1

REPORT INFORMATION
  Report Type: Spontaneous
  Country: DE (occurrence: DE)
  Receive Date: 20190402
  Receipt Date: 20240119
  Transmission Date: 20240409
  Serious: Yes (Life-Threatening, Hospitalization, Other)
  Sender: FDA-Public Use
  Company Number: DE-MLMSERVICE-20190321-1668773-1

PATIENT
  Age: 30 Year
  Sex: Male

DRUGS (12)
  1. CLOZAPINE [Interacting]
     Active Substance: CLOZAPINE
     Indication: Schizophrenia
     Dosage: 25 MILLIGRAM, QD, 25 MG, QD
     Route: 065
  2. CLOZAPINE [Interacting]
     Active Substance: CLOZAPINE
     Dosage: 400 MILLIGRAM, QD (STEPWISE INCREASED TO 400 MG/D OVER A PERIOD OF 4 WEEKS)
     Route: 065
  3. CLOZAPINE [Interacting]
     Active Substance: CLOZAPINE
     Dosage: 450 MILLIGRAM, QD, 450 MG, QD
     Route: 065
  4. CLOZAPINE [Interacting]
     Active Substance: CLOZAPINE
     Dosage: 675 MILLIGRAM, QD, 675 MG, QD
     Route: 065
  5. FLUPENTIXOL [Interacting]
     Active Substance: FLUPENTIXOL
     Indication: Schizophrenia
     Dosage: 12 MILLIGRAM, QD, 12 MG, QD
     Route: 048
  6. FLUPENTIXOL [Interacting]
     Active Substance: FLUPENTIXOL
     Dosage: 2 MILLIGRAM, QD (12)(DAYS 48-51)
     Route: 048
  7. FLUPENTIXOL [Interacting]
     Active Substance: FLUPENTIXOL
     Dosage: 12 MILLIGRAM, QD, 12 MG, QD
     Route: 065
  8. FLUPENTIXOL [Interacting]
     Active Substance: FLUPENTIXOL
     Dosage: 2 MILLIGRAM, QD (12)(DAYS 48-51)
     Route: 065
  9. PIRENZEPINE [Concomitant]
     Active Substance: PIRENZEPINE
     Indication: Salivary hypersecretion
     Dosage: 150 MILLIGRAM, QD, 150 MG, QD
     Route: 065
  10. QUETIAPINE [Concomitant]
     Active Substance: QUETIAPINE
     Indication: Schizophrenia
     Dosage: UNK
     Route: 065
  11. OLANZAPINE [Concomitant]
     Active Substance: OLANZAPINE
     Indication: Schizophrenia
     Dosage: UNK
     Route: 065
  12. AMISULPRIDE [Concomitant]
     Active Substance: AMISULPRIDE
     Indication: Schizophrenia
     Dosage: UNK
     Route: 065

REACTIONS (11)
  - Drug level decreased [Recovering/Resolving]
  - Suicide attempt [Unknown]
  - Emotional distress [Recovered/Resolved]
  - Psychomotor hyperactivity [Recovered/Resolved]
  - Hallucination, auditory [Recovered/Resolved]
  - Hypothermia [Unknown]
  - Psychotic symptom [Recovered/Resolved]
  - Schizophrenia [Recovered/Resolved]
  - Delusion [Recovered/Resolved]
  - Salivary hypersecretion [Unknown]
  - Drug interaction [Recovered/Resolved]
